FAERS Safety Report 11871279 (Version 1)
Quarter: 2015Q4

REPORT INFORMATION
  Report Type: Spontaneous
  Country: US (occurrence: None)
  Receive Date: 20151224
  Receipt Date: 20151224
  Transmission Date: 20160305
  Serious: Yes (Hospitalization)
  Sender: FDA-Public Use
  Company Number: None

PATIENT
  Age: 47 Year
  Sex: Male

DRUGS (20)
  1. NYSTATIN ORAL LIQUID [Concomitant]
     Active Substance: NYSTATIN
  2. ONDANSETRON [Concomitant]
     Active Substance: ONDANSETRON
  3. CALCIUM ACETATE. [Concomitant]
     Active Substance: CALCIUM ACETATE
  4. CEFTRIAXONE. [Concomitant]
     Active Substance: CEFTRIAXONE
  5. EOPETIN [Concomitant]
  6. SIMVASTATIN. [Concomitant]
     Active Substance: SIMVASTATIN
  7. COLCHICINE. [Concomitant]
     Active Substance: COLCHICINE
  8. MIDODRINE [Concomitant]
     Active Substance: MIDODRINE
  9. PREDNISONE. [Concomitant]
     Active Substance: PREDNISONE
  10. FOLIC ACID. [Concomitant]
     Active Substance: FOLIC ACID
  11. MULTIVITAMIN [Concomitant]
     Active Substance: VITAMINS
  12. RANITIDINE [Concomitant]
     Active Substance: RANITIDINE\RANITIDINE HYDROCHLORIDE
  13. WARFARIN [Suspect]
     Active Substance: WARFARIN
     Indication: MITRAL VALVE REPLACEMENT
     Route: 048
     Dates: start: 20151014, end: 20151103
  14. LACTULOSE. [Concomitant]
     Active Substance: LACTULOSE
  15. URSODIAL [Concomitant]
  16. ASPIRIN. [Concomitant]
     Active Substance: ASPIRIN
  17. CINACALCET [Concomitant]
     Active Substance: CINACALCET
  18. METOPROLOL TARTRATE. [Concomitant]
     Active Substance: METOPROLOL TARTRATE
  19. METRONIDAZOLE. [Concomitant]
     Active Substance: METRONIDAZOLE
  20. SEVELAMER [Concomitant]
     Active Substance: SEVELAMER

REACTIONS (7)
  - Gastrointestinal haemorrhage [None]
  - Hypovolaemia [None]
  - Haemoglobin decreased [None]
  - Duodenal ulcer [None]
  - International normalised ratio increased [None]
  - Hypotension [None]
  - Syncope [None]

NARRATIVE: CASE EVENT DATE: 20151104
